FAERS Safety Report 10469556 (Version 1)
Quarter: 2014Q3

REPORT INFORMATION
  Report Type: Spontaneous
  Country: US (occurrence: None)
  Receive Date: 20140922
  Receipt Date: 20140922
  Transmission Date: 20150326
  Serious: Yes (Hospitalization)
  Sender: FDA-Public Use
  Company Number: None

PATIENT
  Age: 76 Year
  Sex: Male
  Weight: 77 kg

DRUGS (3)
  1. CAMPTOSAR [Suspect]
     Active Substance: IRINOTECAN HYDROCHLORIDE
  2. 5-FLUOROURACIL(5-FU) [Suspect]
     Active Substance: FLUOROURACIL
     Dates: end: 20110326
  3. BEVACIZUMAB(RHUMAB VEGF) [Suspect]
     Active Substance: BEVACIZUMAB
     Dates: end: 20110324

REACTIONS (2)
  - Oesophagitis [None]
  - Gastritis erosive [None]

NARRATIVE: CASE EVENT DATE: 20110408
